FAERS Safety Report 9709280 (Version 1)
Quarter: 2013Q4

REPORT INFORMATION
  Report Type: Spontaneous
  Country: US (occurrence: US)
  Receive Date: 20131125
  Receipt Date: 20131125
  Transmission Date: 20140711
  Serious: Yes (Death, Hospitalization, Other)
  Sender: FDA-Public Use
  Company Number: US-ABBVIE-13P-163-1171764-00

PATIENT
  Age: 26 Year
  Sex: Male
  Weight: 72.64 kg

DRUGS (2)
  1. CREON [Suspect]
     Indication: CYSTIC FIBROSIS
     Dosage: 8-10 PER MEAL
     Dates: end: 2009
  2. PREDNISONE [Suspect]
     Indication: CYSTIC FIBROSIS

REACTIONS (7)
  - Pneumonia [Fatal]
  - Cystic fibrosis [Fatal]
  - Acute respiratory distress syndrome [Fatal]
  - Lung transplant [Fatal]
  - Complications of transplanted lung [Fatal]
  - Diabetes mellitus [Not Recovered/Not Resolved]
  - Herpes zoster [Not Recovered/Not Resolved]
